FAERS Safety Report 15105014 (Version 6)
Quarter: 2020Q1

REPORT INFORMATION
  Report Type: Report from Study
  Country: PL (occurrence: PL)
  Receive Date: 20180703
  Receipt Date: 20200305
  Transmission Date: 20200409
  Serious: Yes (Hospitalization)
  Sender: FDA-Public Use
  Company Number: PL-AMGEN-POLCT2018089003

PATIENT
  Age: 30 Year
  Sex: Female
  Weight: 45.9 kg

DRUGS (25)
  1. CALPEROS [CALCIUM CARBONATE] [Concomitant]
     Active Substance: CALCIUM CARBONATE
     Dosage: 1000 MILLIGRAM, 2 UNK
     Dates: start: 20180314, end: 20180719
  2. LEVOXA [Concomitant]
     Active Substance: LEVOFLOXACIN
     Dosage: 1 UNK
     Dates: start: 20180329, end: 20180407
  3. FUROSEMIDE. [Concomitant]
     Active Substance: FUROSEMIDE
     Dosage: 20 MILLIGRAM
     Dates: start: 20180417, end: 20180418
  4. CARFILZOMIB [Suspect]
     Active Substance: CARFILZOMIB
     Dosage: 84 MILLIGRAM, PER CHEMO REGIM
     Route: 042
  5. TAMIFLU [Concomitant]
     Active Substance: OSELTAMIVIR PHOSPHATE
     Dosage: 1 UNK
     Dates: start: 20180329, end: 20180402
  6. APAP [Concomitant]
     Active Substance: ACETAMINOPHEN
     Dosage: 500 MILLIGRAM
     Dates: start: 20180507, end: 20180508
  7. MILURIT [Concomitant]
     Active Substance: ALLOPURINOL
     Dosage: 1 UNK
     Dates: start: 20180120
  8. DEVIKAP [Concomitant]
     Dosage: 4 GTT DROPS
     Dates: start: 20180206
  9. MONTELUKAST [Concomitant]
     Active Substance: MONTELUKAST SODIUM
     Dosage: 10 MILLIGRAM
     Route: 048
     Dates: start: 20180116
  10. CLEMASTINE [Concomitant]
     Active Substance: CLEMASTINE
     Dosage: 2 MILLIGRAM
     Route: 048
     Dates: start: 20180116
  11. BISEPTOL [Concomitant]
     Active Substance: SULFAMETHOXAZOLE\TRIMETHOPRIM
     Dosage: 1 UNK
     Route: 048
     Dates: start: 20180116
  12. CARFILZOMIB [Suspect]
     Active Substance: CARFILZOMIB
     Dosage: UNK UNK, PER CHEMO REGIM
     Route: 042
     Dates: start: 20180712
  13. CONTROLOC [Concomitant]
     Active Substance: PANTOPRAZOLE SODIUM
     Dosage: 1 UNK
     Route: 048
     Dates: start: 20180116
  14. DEXAMETHASONE. [Suspect]
     Active Substance: DEXAMETHASONE
     Indication: PLASMA CELL MYELOMA
     Dosage: 20-40 MILLIGRAM
     Route: 048
     Dates: start: 20180329
  15. NO-SPA [Concomitant]
     Active Substance: DROTAVERINE HYDROCHLORIDE
     Dosage: 1 UNK
     Dates: start: 20180328
  16. MONTELUCAST [Concomitant]
     Active Substance: MONTELUKAST SODIUM
     Dosage: 10 MILLIGRAM
     Route: 048
     Dates: start: 20180516
  17. CARFILZOMIB [Suspect]
     Active Substance: CARFILZOMIB
     Indication: PLASMA CELL MYELOMA
     Dosage: UNK UNK, PER CHEMO REGIM
     Route: 042
     Dates: start: 20180116
  18. NACL [Concomitant]
     Active Substance: SODIUM CHLORIDE
     Dosage: 500 MILLILITER
     Dates: start: 20180417, end: 20180517
  19. DARATUMUMAB [Suspect]
     Active Substance: DARATUMUMAB
     Dosage: UNK UNK, PER CHEMO REGIM
     Route: 042
     Dates: start: 20180712
  20. ZOLEDRONIC ACID [Concomitant]
     Active Substance: ZOLEDRONIC ACID
     Dosage: 4 MILLIGRAM
     Dates: start: 20180517, end: 20180517
  21. DARATUMUMAB [Suspect]
     Active Substance: DARATUMUMAB
     Indication: PLASMA CELL MYELOMA
     Dosage: 768 MILLIGRAM, PER CHEMO REGIM
     Route: 042
     Dates: start: 20180116
  22. CONCOR COR [Concomitant]
     Active Substance: BISOPROLOL FUMARATE
     Dosage: 1 UNK
     Dates: start: 20180322
  23. PARACETAMOL [Concomitant]
     Active Substance: ACETAMINOPHEN
     Dosage: 500-1000 MILLIGRAM AND 1 GRAM
     Route: 048
     Dates: start: 20180116
  24. METHYLPREDNISOLONE. [Concomitant]
     Active Substance: METHYLPREDNISOLONE
     Dosage: 20 MILLIGRAM
     Route: 048
     Dates: start: 20180120
  25. HASCOVIR [Concomitant]
     Dosage: 3 UNK
     Route: 048
     Dates: start: 20180116

REACTIONS (1)
  - Sinusitis [Recovered/Resolved]

NARRATIVE: CASE EVENT DATE: 20180627
